FAERS Safety Report 19135182 (Version 2)
Quarter: 2021Q3

REPORT INFORMATION
  Report Type: Spontaneous
  Country: US (occurrence: US)
  Receive Date: 20210414
  Receipt Date: 20210920
  Transmission Date: 20211014
  Serious: Yes (Other)
  Sender: FDA-Public Use
  Company Number: US-GILEAD-2021-0524848

PATIENT
  Age: 47 Year
  Sex: Male
  Weight: 73.92 kg

DRUGS (19)
  1. ATRIPLA [Suspect]
     Active Substance: EFAVIRENZ\EMTRICITABINE\TENOFOVIR DISOPROXIL FUMARATE
     Indication: HIV INFECTION
     Dosage: UNK
     Route: 048
     Dates: start: 200712, end: 201708
  2. ADDERALL [Concomitant]
     Active Substance: AMPHETAMINE ASPARTATE\AMPHETAMINE SULFATE\DEXTROAMPHETAMINE SACCHARATE\DEXTROAMPHETAMINE SULFATE
  3. TESTOSTERONE. [Concomitant]
     Active Substance: TESTOSTERONE
  4. VIAGRA [Concomitant]
     Active Substance: SILDENAFIL CITRATE
  5. HUMALOG [Concomitant]
     Active Substance: INSULIN LISPRO
  6. HYZAAR [Concomitant]
     Active Substance: HYDROCHLOROTHIAZIDE\LOSARTAN POTASSIUM
  7. PREVACID [Concomitant]
     Active Substance: LANSOPRAZOLE
  8. UROXATRAL [Concomitant]
     Active Substance: ALFUZOSIN HYDROCHLORIDE
  9. LANTUS [Concomitant]
     Active Substance: INSULIN GLARGINE
  10. LIPITOR [Concomitant]
     Active Substance: ATORVASTATIN CALCIUM
  11. PROTOPIC [Concomitant]
     Active Substance: TACROLIMUS
  12. ACYCLOVIR [ACICLOVIR] [Concomitant]
     Active Substance: ACYCLOVIR
  13. LOPRESSOR [Concomitant]
     Active Substance: METOPROLOL TARTRATE
  14. NORVASC [Concomitant]
     Active Substance: AMLODIPINE BESYLATE
  15. GLUCOPHAGE XR [Concomitant]
     Active Substance: METFORMIN HYDROCHLORIDE
  16. TRIUMEQ [Concomitant]
     Active Substance: ABACAVIR SULFATE\DOLUTEGRAVIR SODIUM\LAMIVUDINE
  17. PAXIL [Concomitant]
     Active Substance: PAROXETINE HYDROCHLORIDE
  18. CLINDAMYCIN. [Concomitant]
     Active Substance: CLINDAMYCIN
  19. LOVAZA [Concomitant]
     Active Substance: OMEGA-3-ACID ETHYL ESTERS

REACTIONS (8)
  - Emotional distress [Unknown]
  - Anxiety [Unknown]
  - Anhedonia [Unknown]
  - Bone density decreased [Unknown]
  - Pain [Unknown]
  - Wrist fracture [Recovered/Resolved]
  - Osteopenia [Not Recovered/Not Resolved]
  - Bone pain [Not Recovered/Not Resolved]

NARRATIVE: CASE EVENT DATE: 201312
